FAERS Safety Report 10435921 (Version 1)
Quarter: 2014Q3

REPORT INFORMATION
  Report Type: Spontaneous
  Country: US (occurrence: US)
  Receive Date: 20140908
  Receipt Date: 20140908
  Transmission Date: 20150326
  Serious: No
  Sender: FDA-Public Use
  Company Number: US-GLAXOSMITHKLINE-A1076774A

PATIENT
  Age: 83 Year
  Sex: Male

DRUGS (7)
  1. ALBUTEROL. [Concomitant]
     Active Substance: ALBUTEROL
  2. MELOXICAM. [Concomitant]
     Active Substance: MELOXICAM
  3. OTC COUGH MEDICINE [Concomitant]
  4. LYRICA [Concomitant]
     Active Substance: PREGABALIN
  5. IPRATROPIUM [Concomitant]
     Active Substance: IPRATROPIUM
  6. COUMADIN [Concomitant]
     Active Substance: WARFARIN SODIUM
  7. BREO ELLIPTA [Suspect]
     Active Substance: FLUTICASONE FUROATE\VILANTEROL TRIFENATATE
     Indication: CHRONIC OBSTRUCTIVE PULMONARY DISEASE
     Dosage: 1PUFF PER DAY
     Route: 055
     Dates: start: 20140610

REACTIONS (2)
  - Asthenia [Unknown]
  - Malaise [Unknown]
